FAERS Safety Report 7672276-9 (Version None)
Quarter: 2011Q3

REPORT INFORMATION
  Report Type: 
  Country: None (occurrence: None)
  Receive Date: 20110809
  Receipt Date: 20110729
  Transmission Date: 20111222
  Serious: Yes (Hospitalization)
  Sender: FDA-Public Use
  Company Number: GR-JNJFOC-20110800902

PATIENT
  Age: 74 Year
  Sex: Male

DRUGS (4)
  1. REMICADE [Suspect]
     Indication: PSORIATIC ARTHROPATHY
     Route: 042
     Dates: start: 20100527
  2. REMICADE [Suspect]
     Route: 042
     Dates: start: 20110614
  3. REMICADE [Suspect]
     Route: 042
     Dates: start: 20110614
  4. REMICADE [Suspect]
     Indication: PSORIASIS
     Route: 042
     Dates: start: 20100527

REACTIONS (1)
  - TUBERCULOSIS [None]
